FAERS Safety Report 17030080 (Version 1)
Quarter: 2019Q4

REPORT INFORMATION
  Report Type: Spontaneous
  Country: US (occurrence: US)
  Receive Date: 20191114
  Receipt Date: 20191114
  Transmission Date: 20200122
  Serious: Yes (Other)
  Sender: FDA-Public Use
  Company Number: US-SUN PHARMACEUTICAL INDUSTRIES LTD-2019R1-226795

PATIENT
  Age: 4 Year
  Sex: Female

DRUGS (6)
  1. COLCHICINE. [Suspect]
     Active Substance: COLCHICINE
     Indication: PANNICULITIS
  2. DAPSONE. [Suspect]
     Active Substance: DAPSONE
     Indication: NEUTROPHILIC DERMATOSIS
     Dosage: UNK
     Route: 065
  3. PREDNISONE. [Suspect]
     Active Substance: PREDNISONE
     Indication: NEUTROPHILIC DERMATOSIS
     Dosage: UNK
     Route: 065
  4. COLCHICINE. [Suspect]
     Active Substance: COLCHICINE
     Indication: NEUTROPHILIC DERMATOSIS
     Dosage: UNK
     Route: 065
  5. DAPSONE. [Suspect]
     Active Substance: DAPSONE
     Indication: PANNICULITIS
  6. PREDNISONE. [Suspect]
     Active Substance: PREDNISONE
     Indication: PANNICULITIS

REACTIONS (1)
  - Treatment failure [Unknown]
